FAERS Safety Report 4269588-8 (Version None)
Quarter: 2004Q1

REPORT INFORMATION
  Report Type: 
  Country: None (occurrence: None)
  Receive Date: 20040112
  Receipt Date: 20031229
  Transmission Date: 20041129
  Serious: Yes (Death)
  Sender: FDA-Public Use
  Company Number: 200323139GDDC

PATIENT
  Age: 88 Year
  Sex: Male
  Weight: 60 kg

DRUGS (3)
  1. INDAPAMIDE [Suspect]
     Indication: ESSENTIAL HYPERTENSION
     Dosage: 2.5 MG QD PO
     Route: 048
     Dates: start: 20030620, end: 20030717
  2. ACCUPRIL [Concomitant]
  3. ACETYLSALICYLIC ACID (ASTRIX) [Concomitant]

REACTIONS (1)
  - HYPONATRAEMIA [None]
